FAERS Safety Report 7020655-5 (Version None)
Quarter: 2010Q3

REPORT INFORMATION
  Report Type: 
  Country: None (occurrence: None)
  Receive Date: 20100929
  Receipt Date: 20100629
  Transmission Date: 20110219
  Serious: Yes (Other)
  Sender: FDA-Public Use
  Company Number: B0676765B

PATIENT
  Sex: Male

DRUGS (3)
  1. DIGOXIN [Suspect]
     Indication: EJECTION FRACTION DECREASED
  2. EPIRUBICIN [Suspect]
  3. HERCEPTIN [Suspect]

REACTIONS (3)
  - DRUG EXPOSURE DURING PREGNANCY [None]
  - LIVE BIRTH [None]
  - TACHYPNOEA [None]
